FAERS Safety Report 6849538-8 (Version None)
Quarter: 2010Q3

REPORT INFORMATION
  Report Type: 
  Country: None (occurrence: None)
  Receive Date: 20100716
  Receipt Date: 20071120
  Transmission Date: 20110219
  Serious: No
  Sender: FDA-Public Use
  Company Number: US-PFIZER INC-2007082802

PATIENT
  Age: 62 Year
  Sex: Female
  Weight: 79.38 kg

DRUGS (16)
  1. CHANTIX [Suspect]
     Indication: SMOKING CESSATION THERAPY
     Dates: start: 20070922, end: 20070930
  2. VITAMINS [Concomitant]
  3. MUCINEX [Concomitant]
  4. WARFARIN SODIUM [Concomitant]
  5. MONTELUKAST SODIUM [Concomitant]
  6. IMDUR [Concomitant]
  7. LASIX [Concomitant]
     Indication: HEART RATE IRREGULAR
  8. NEXIUM [Concomitant]
  9. VALSARTAN [Concomitant]
     Indication: HYPERTENSION
  10. LOPRESSOR [Concomitant]
     Indication: HYPERTENSION
  11. K-DUR [Concomitant]
  12. TOPAMAX [Concomitant]
     Indication: BIPOLAR DISORDER
  13. DEPAKOTE [Concomitant]
     Indication: BIPOLAR DISORDER
  14. ACETYLSALICYLIC ACID [Concomitant]
  15. ZETIA [Concomitant]
  16. LIPITOR [Concomitant]

REACTIONS (10)
  - ANGER [None]
  - BLOOD PRESSURE DECREASED [None]
  - CRYING [None]
  - DEPRESSION [None]
  - FATIGUE [None]
  - FEELING ABNORMAL [None]
  - HYPOAESTHESIA FACIAL [None]
  - NAUSEA [None]
  - NIGHTMARE [None]
  - SOMNOLENCE [None]
